FAERS Safety Report 21346989 (Version 1)
Quarter: 2022Q3

REPORT INFORMATION
  Report Type: Spontaneous
  Country: US (occurrence: None)
  Receive Date: 20220916
  Receipt Date: 20220916
  Transmission Date: 20221026
  Serious: No
  Sender: FDA-Public Use
  Company Number: None

PATIENT
  Age: 83 Year
  Sex: Male
  Weight: 86.18 kg

DRUGS (15)
  1. HUMIRA [Suspect]
     Active Substance: ADALIMUMAB
     Dosage: 40MG Q OTHER WEEK SQ?
     Route: 058
  2. Betamethasone Diprionate [Concomitant]
  3. CEFADROXIL [Concomitant]
     Active Substance: CEFADROXIL
  4. CLOTRIMAZOLE [Concomitant]
     Active Substance: CLOTRIMAZOLE
  5. ELIQUIS [Concomitant]
     Active Substance: APIXABAN
  6. FOLIC ACID [Concomitant]
     Active Substance: FOLIC ACID
  7. METHOTREXATE [Concomitant]
     Active Substance: METHOTREXATE
  8. MUPIROCIN [Concomitant]
     Active Substance: MUPIROCIN
  9. MYRBETRIQ [Concomitant]
     Active Substance: MIRABEGRON
  10. NYSTATIN [Concomitant]
     Active Substance: NYSTATIN
  11. PREDNISONE [Concomitant]
     Active Substance: PREDNISONE
  12. OLOPATADINE HYDROCHLORIDE [Concomitant]
     Active Substance: OLOPATADINE HYDROCHLORIDE
  13. SINGULAIR [Concomitant]
     Active Substance: MONTELUKAST SODIUM
  14. ZITHROMAX [Concomitant]
     Active Substance: AZITHROMYCIN DIHYDRATE
  15. ZITHROMAX [Concomitant]
     Active Substance: AZITHROMYCIN DIHYDRATE

REACTIONS (1)
  - COVID-19 [None]
